FAERS Safety Report 7279703-X (Version None)
Quarter: 2011Q1

REPORT INFORMATION
  Report Type: 
  Country: None (occurrence: None)
  Receive Date: 20110203
  Receipt Date: 20110203
  Transmission Date: 20110831
  Serious: Yes (Life-Threatening)
  Sender: FDA-Public Use
  Company Number: None

PATIENT
  Age: 68 Year
  Sex: Female
  Weight: 77.2 kg

DRUGS (1)
  1. HUMIRA [Suspect]
     Indication: PSORIASIS
     Dates: start: 20101114, end: 20101207

REACTIONS (5)
  - STAPHYLOCOCCAL INFECTION [None]
  - EPISTAXIS [None]
  - ARTHRALGIA [None]
  - MUSCULOSKELETAL PAIN [None]
  - ACUTE LYMPHOCYTIC LEUKAEMIA [None]
